FAERS Safety Report 15551238 (Version 3)
Quarter: 2025Q2

REPORT INFORMATION
  Report Type: Report from Study
  Country: CA (occurrence: CA)
  Receive Date: 20181025
  Receipt Date: 20250422
  Transmission Date: 20250717
  Serious: Yes (Other)
  Sender: ROCHE
  Company Number: CA-ROCHE-2182445

PATIENT
  Age: 47 Year
  Sex: Male
  Weight: 122.47 kg

DRUGS (12)
  1. ACTEMRA [Suspect]
     Active Substance: TOCILIZUMAB
     Indication: Acute febrile neutrophilic dermatosis
     Route: 058
     Dates: start: 20170705, end: 20180402
  2. ACTEMRA [Suspect]
     Active Substance: TOCILIZUMAB
     Dosage: (FILE RE-ACTIVATION)
     Route: 058
     Dates: start: 201809
  3. ACTEMRA [Suspect]
     Active Substance: TOCILIZUMAB
     Route: 058
     Dates: start: 20180914, end: 20181006
  4. ACTEMRA [Suspect]
     Active Substance: TOCILIZUMAB
     Indication: Acute febrile neutrophilic dermatosis
     Dosage: PENDING RE-START, ONGOING
     Route: 042
  5. RITUXAN [Suspect]
     Active Substance: RITUXIMAB
     Indication: Lymphoma
     Route: 065
     Dates: end: 2016
  6. ALLOPURINOL [Concomitant]
     Active Substance: ALLOPURINOL
  7. LISINOPRIL [Concomitant]
     Active Substance: LISINOPRIL
  8. METHOTREXATE [Concomitant]
     Active Substance: METHOTREXATE
  9. XARELTO [Concomitant]
     Active Substance: RIVAROXABAN
  10. PREDNISONE [Concomitant]
     Active Substance: PREDNISONE
  11. PANTOPRAZOLE SODIUM [Concomitant]
     Active Substance: PANTOPRAZOLE SODIUM
  12. RITALIN [Concomitant]
     Active Substance: METHYLPHENIDATE HYDROCHLORIDE

REACTIONS (9)
  - Weight increased [Unknown]
  - Weight decreased [Unknown]
  - Interleukin level increased [Unknown]
  - Drug ineffective [Unknown]
  - Product prescribing error [Unknown]
  - Hypogammaglobulinaemia [Unknown]
  - Arthropathy [Unknown]
  - Skin disorder [Unknown]
  - Drug ineffective [Unknown]

NARRATIVE: CASE EVENT DATE: 20180101
